FAERS Safety Report 6711525-8 (Version None)
Quarter: 2010Q2

REPORT INFORMATION
  Report Type: 
  Country: None (occurrence: None)
  Receive Date: 20100505
  Receipt Date: 20100422
  Transmission Date: 20101027
  Serious: Yes (Other)
  Sender: FDA-Public Use
  Company Number: PHHY2010CA18377

PATIENT
  Sex: Male

DRUGS (1)
  1. CLOZARIL [Suspect]
     Dosage: UNK
     Dates: start: 20040729, end: 20100313

REACTIONS (8)
  - DERMATITIS [None]
  - HODGKIN'S DISEASE STAGE III [None]
  - IRON DEFICIENCY [None]
  - NEOPLASM MALIGNANT [None]
  - ORTHOSTATIC HYPOTENSION [None]
  - RENAL FAILURE ACUTE [None]
  - RESPIRATORY TRACT INFECTION [None]
  - THROMBOCYTOSIS [None]
